FAERS Safety Report 17028225 (Version 1)
Quarter: 2019Q4

REPORT INFORMATION
  Report Type: Spontaneous
  Country: FR (occurrence: FR)
  Receive Date: 20191113
  Receipt Date: 20191113
  Transmission Date: 20200122
  Serious: Yes (Hospitalization)
  Sender: FDA-Public Use
  Company Number: FR-009507513-1911FRA002074

PATIENT
  Age: 78 Year
  Sex: Male
  Weight: 80 kg

DRUGS (9)
  1. AERIUS (DESLORATADINE) [Suspect]
     Active Substance: DESLORATADINE
     Indication: RHINITIS
     Dosage: 1 DOSAGE FORM, QD
     Route: 048
     Dates: start: 201904, end: 20190904
  2. PERINDOPRIL [Suspect]
     Active Substance: PERINDOPRIL
     Dosage: UNK
  3. BISOPROLOL [Concomitant]
     Active Substance: BISOPROLOL
     Dosage: UNK
  4. ATORVASTATIN [Suspect]
     Active Substance: ATORVASTATIN
     Indication: LOW DENSITY LIPOPROTEIN INCREASED
     Dosage: 1 DOSAGE FORM, QD
     Route: 048
     Dates: start: 20190802, end: 20190904
  5. LESCOL [Suspect]
     Active Substance: FLUVASTATIN SODIUM
     Indication: DYSLIPIDAEMIA
     Dosage: 1 DOSAGE FORM, QD (FORMULATION: PROLONGED-RELEASED FILM COATED TABLET)
     Route: 048
     Dates: end: 20190904
  6. LEVETIRACETAM. [Concomitant]
     Active Substance: LEVETIRACETAM
     Dosage: UNK
  7. PANTOPRAZOLE [Concomitant]
     Active Substance: PANTOPRAZOLE
  8. ELIQUIS [Suspect]
     Active Substance: APIXABAN
     Indication: ATRIAL FIBRILLATION
     Dosage: 2 DOSAGE FORM, QD
     Route: 048
     Dates: start: 20190801, end: 20190829
  9. XATRAL [Concomitant]
     Active Substance: ALFUZOSIN
     Dosage: UNK

REACTIONS (3)
  - Jaundice [Recovered/Resolved]
  - Thrombocytopenia [Recovered/Resolved]
  - Hepatic failure [Recovering/Resolving]

NARRATIVE: CASE EVENT DATE: 20190829
